FAERS Safety Report 6371664-0 (Version None)
Quarter: 2009Q3

REPORT INFORMATION
  Report Type: 
  Country: None (occurrence: None)
  Receive Date: 20090923
  Receipt Date: 20080402
  Transmission Date: 20100115
  Serious: No
  Sender: FDA-Public Use
  Company Number: US-ASTRAZENECA-2008UW01683

PATIENT
  Age: 600 Month
  Sex: Male
  Weight: 88.9 kg

DRUGS (15)
  1. SEROQUEL [Suspect]
     Indication: SCHIZOPHRENIA
     Dosage: 200MG, 300MG AND 600MG
     Route: 048
     Dates: start: 19950101
  2. SEROQUEL [Suspect]
     Dosage: 200 MG - 600 MG
     Route: 048
     Dates: start: 20040707
  3. ABILIFY [Concomitant]
     Route: 048
  4. RISPERDAL [Concomitant]
     Route: 048
     Dates: start: 20040701
  5. TRILAFON [Concomitant]
     Route: 065
  6. ZYPREXA [Concomitant]
     Route: 048
  7. PROZAC [Concomitant]
     Route: 048
     Dates: start: 20040701
  8. PROZAC [Concomitant]
     Route: 048
  9. TRAZODONE HCL [Concomitant]
     Route: 065
     Dates: start: 20040701
  10. TRAZODONE HCL [Concomitant]
     Route: 048
  11. HYDROXYZINE [Concomitant]
     Route: 048
  12. RITALIN [Concomitant]
     Route: 048
  13. PAXIL [Concomitant]
     Route: 048
  14. GLUCOTROL [Concomitant]
     Route: 065
  15. GLUCOPHAGE [Concomitant]
     Route: 065

REACTIONS (2)
  - DIABETES MELLITUS [None]
  - HYPERTENSION [None]
